FAERS Safety Report 17361865 (Version 1)
Quarter: 2020Q1

REPORT INFORMATION
  Report Type: Spontaneous
  Country: US (occurrence: US)
  Receive Date: 20200203
  Receipt Date: 20200203
  Transmission Date: 20200409
  Serious: No
  Sender: FDA-Public Use
  Company Number: US-PFIZER INC-2020047696

PATIENT
  Age: 53 Year
  Sex: Male

DRUGS (1)
  1. IBRANCE [Suspect]
     Active Substance: PALBOCICLIB
     Dosage: 125 MG, CYCLIC (ONCE A DAY FOR 21 DAYS, EVERY 28 DAYS)
     Route: 048
     Dates: start: 20180802

REACTIONS (2)
  - Anxiety [Unknown]
  - Depressed mood [Unknown]
